FAERS Safety Report 9714596 (Version 1)
Quarter: 2013Q4

REPORT INFORMATION
  Report Type: Spontaneous
  Country: US (occurrence: US)
  Receive Date: 20131126
  Receipt Date: 20131126
  Transmission Date: 20140711
  Serious: No
  Sender: FDA-Public Use
  Company Number: US-PFIZER INC-2013338080

PATIENT
  Sex: Female

DRUGS (3)
  1. LYRICA [Suspect]
     Indication: FIBROMYALGIA
     Dosage: 25 MG, QHS
     Dates: start: 201311
  2. LYRICA [Suspect]
     Indication: NEUROPATHY PERIPHERAL
  3. NORVASC [Suspect]
     Dosage: UNK

REACTIONS (2)
  - Balance disorder [Unknown]
  - Dizziness [Unknown]
